FAERS Safety Report 5016872-6 (Version None)
Quarter: 2006Q2

REPORT INFORMATION
  Report Type: 
  Country: None (occurrence: None)
  Receive Date: 20060602
  Receipt Date: 20060522
  Transmission Date: 20061013
  Serious: Yes (Other)
  Sender: FDA-Public Use
  Company Number: 2006UW09959

PATIENT
  Sex: Male
  Weight: 84.4 kg

DRUGS (7)
  1. CRESTOR [Suspect]
     Indication: BLOOD CHOLESTEROL INCREASED
     Route: 048
     Dates: start: 20060101, end: 20060512
  2. CYMBALTA [Concomitant]
  3. AMBIEN [Concomitant]
  4. SKELAXIN [Concomitant]
  5. M.V.I. [Concomitant]
  6. BLOOD PRESSURE MEDS [Concomitant]
  7. DIABETES MEDS [Concomitant]

REACTIONS (8)
  - ANOREXIA [None]
  - ASTHENIA [None]
  - DIFFICULTY IN WALKING [None]
  - FALL [None]
  - INSOMNIA [None]
  - MYALGIA [None]
  - URINARY HESITATION [None]
  - WEIGHT DECREASED [None]
